FAERS Safety Report 17869432 (Version 1)
Quarter: 2020Q2

REPORT INFORMATION
  Report Type: Spontaneous
  Country: US (occurrence: US)
  Receive Date: 20200608
  Receipt Date: 20200608
  Transmission Date: 20200714
  Serious: Yes (Other)
  Sender: FDA-Public Use
  Company Number: US-TEVA-2020-US-1245326

PATIENT
  Sex: Male

DRUGS (14)
  1. LEVETIRACETAM. [Suspect]
     Active Substance: LEVETIRACETAM
     Indication: RASMUSSEN ENCEPHALITIS
     Route: 065
  2. PREDNISONE. [Suspect]
     Active Substance: PREDNISONE
     Indication: RASMUSSEN ENCEPHALITIS
     Dosage: 40 MILLIGRAM DAILY; TAPERING
     Route: 065
  3. DIAZEPAM. [Suspect]
     Active Substance: DIAZEPAM
     Indication: RASMUSSEN ENCEPHALITIS
     Route: 065
  4. METHYLPREDNISOLONE. [Suspect]
     Active Substance: METHYLPREDNISOLONE
     Indication: RASMUSSEN ENCEPHALITIS
     Dosage: 1 GRAM DAILY;
     Route: 042
  5. METHYLPREDNISOLONE. [Suspect]
     Active Substance: METHYLPREDNISOLONE
     Dosage: 30 MG/KG/DAY
     Route: 065
  6. OXCARBAZEPINE. [Suspect]
     Active Substance: OXCARBAZEPINE
     Indication: RASMUSSEN ENCEPHALITIS
     Route: 065
  7. RITUXIMAB. [Suspect]
     Active Substance: RITUXIMAB
     Indication: RASMUSSEN ENCEPHALITIS
     Dosage: 53.5714 MG/M2 DAILY;
     Route: 065
  8. ZONISAMIDE. [Suspect]
     Active Substance: ZONISAMIDE
     Indication: RASMUSSEN ENCEPHALITIS
     Route: 065
  9. PHENOBARBITAL. [Concomitant]
     Active Substance: PHENOBARBITAL
     Indication: RASMUSSEN ENCEPHALITIS
     Route: 065
  10. TOPIRAMATE. [Suspect]
     Active Substance: TOPIRAMATE
     Indication: RASMUSSEN ENCEPHALITIS
     Route: 065
  11. FOSPHENYTOIN [Concomitant]
     Active Substance: FOSPHENYTOIN
     Indication: RASMUSSEN ENCEPHALITIS
     Route: 065
  12. LACOSAMIDE. [Concomitant]
     Active Substance: LACOSAMIDE
     Indication: RASMUSSEN ENCEPHALITIS
     Route: 065
  13. IMMUNO-GLOBULIN [Concomitant]
     Indication: RASMUSSEN ENCEPHALITIS
     Dosage: 2 G/KG
     Route: 042
  14. VALPROIC ACID. [Suspect]
     Active Substance: VALPROIC ACID
     Indication: RASMUSSEN ENCEPHALITIS
     Route: 065

REACTIONS (2)
  - Drug ineffective [Unknown]
  - Multiple-drug resistance [Unknown]
